FAERS Safety Report 25204537 (Version 1)
Quarter: 2025Q2

REPORT INFORMATION
  Report Type: Spontaneous
  Country: US (occurrence: US)
  Receive Date: 20250416
  Receipt Date: 20250416
  Transmission Date: 20250717
  Serious: No
  Sender: Unknown Manufacturer
  Company Number: US-MTPC-MTPA2025-0007089

PATIENT

DRUGS (2)
  1. RADICAVA ORS [Suspect]
     Active Substance: EDARAVONE
     Indication: Amyotrophic lateral sclerosis
     Route: 048
     Dates: start: 202211
  2. RADICAVA ORS [Suspect]
     Active Substance: EDARAVONE
     Indication: Amyotrophic lateral sclerosis
     Route: 048
     Dates: start: 202211

REACTIONS (2)
  - Muscular weakness [Unknown]
  - Malaise [Recovered/Resolved]
